FAERS Safety Report 20972114 (Version 1)
Quarter: 2022Q2

REPORT INFORMATION
  Report Type: Spontaneous
  Country: US (occurrence: US)
  Receive Date: 20220616
  Receipt Date: 20220616
  Transmission Date: 20220721
  Serious: No
  Sender: FDA-Public Use
  Company Number: US-SA-SAC20220615001437

PATIENT
  Age: 51 Year
  Sex: Male

DRUGS (9)
  1. AUBAGIO [Suspect]
     Active Substance: TERIFLUNOMIDE
     Indication: Type 2 diabetes mellitus
     Dosage: 1 DF, QD
     Route: 048
     Dates: start: 2020
  2. CARVEDILOL [Concomitant]
     Active Substance: CARVEDILOL
  3. GLIPIZIDE [Concomitant]
     Active Substance: GLIPIZIDE
  4. INVOKANA [Concomitant]
     Active Substance: CANAGLIFLOZIN
  5. JANTOVEN [Concomitant]
     Active Substance: WARFARIN SODIUM
  6. LISINOPRIL [Concomitant]
     Active Substance: LISINOPRIL
  7. METFORMIN [Concomitant]
     Active Substance: METFORMIN HYDROCHLORIDE
  8. SIMVASTATIN [Concomitant]
     Active Substance: SIMVASTATIN
  9. JANTOVEN [Concomitant]
     Active Substance: WARFARIN SODIUM

REACTIONS (5)
  - Tremor [Not Recovered/Not Resolved]
  - Depression [Unknown]
  - Fatigue [Unknown]
  - Insomnia [Unknown]
  - Product use in unapproved indication [Unknown]

NARRATIVE: CASE EVENT DATE: 20200101
